FAERS Safety Report 4433922-6 (Version None)
Quarter: 2004Q3

REPORT INFORMATION
  Report Type: 
  Country: None (occurrence: None)
  Receive Date: 20040824
  Receipt Date: 20040824
  Transmission Date: 20050211
  Serious: Yes (Other)
  Sender: FDA-Public Use
  Company Number: None

PATIENT
  Age: 30 Year
  Sex: Female
  Weight: 70.3075 kg

DRUGS (3)
  1. ORTHO EVRA [Suspect]
     Indication: CONTRACEPTION
     Dosage: 0.15 MG/0/0 ONCE WEEKL TRANSDERMAL
     Route: 062
     Dates: start: 20031001, end: 20040401
  2. ORTHO EVRA [Suspect]
     Indication: CONTRACEPTION
     Dosage: 0.15 MG/0/0 ONCE WEEKL TRANSDERMAL
     Route: 062
     Dates: start: 20040602, end: 20040531
  3. TOPROL-XL [Concomitant]

REACTIONS (2)
  - ATRIAL TACHYCARDIA [None]
  - VENTRICULAR EXTRASYSTOLES [None]
